FAERS Safety Report 7205364-1 (Version None)
Quarter: 2010Q4

REPORT INFORMATION
  Report Type: 
  Country: None (occurrence: None)
  Receive Date: 20101231
  Receipt Date: 20101223
  Transmission Date: 20110411
  Serious: Yes (Other)
  Sender: FDA-Public Use
  Company Number: US-US-EMD SERONO, INC.-7032237

PATIENT
  Sex: Female
  Weight: 77 kg

DRUGS (3)
  1. REBIF [Suspect]
     Indication: MULTIPLE SCLEROSIS
     Route: 058
     Dates: start: 20090618
  2. KLONOPIN [Concomitant]
     Indication: MULTIPLE SCLEROSIS
  3. LEXAPRO [Concomitant]
     Indication: PROPHYLAXIS

REACTIONS (2)
  - VASCULITIS [None]
  - VITAMIN D DECREASED [None]
